FAERS Safety Report 21145932 (Version 1)
Quarter: 2022Q3

REPORT INFORMATION
  Report Type: Spontaneous
  Country: HR (occurrence: HR)
  Receive Date: 20220729
  Receipt Date: 20220729
  Transmission Date: 20221027
  Serious: Yes (Other)
  Sender: FDA-Public Use
  Company Number: None

PATIENT
  Age: 49 Year
  Sex: Female

DRUGS (1)
  1. EVRYSDI [Suspect]
     Active Substance: RISDIPLAM
     Indication: Spinal muscular atrophy
     Route: 065
     Dates: start: 202201, end: 202207

REACTIONS (6)
  - Iron binding capacity unsaturated increased [Recovering/Resolving]
  - Anaemia [Recovering/Resolving]
  - Platelet count increased [Recovering/Resolving]
  - Blood iron decreased [Recovering/Resolving]
  - Iron binding capacity total increased [Recovering/Resolving]
  - Dizziness [Unknown]

NARRATIVE: CASE EVENT DATE: 20220601
